FAERS Safety Report 14929780 (Version 13)
Quarter: 2021Q3

REPORT INFORMATION
  Report Type: Spontaneous
  Country: PL (occurrence: PL)
  Receive Date: 20180523
  Receipt Date: 20210803
  Transmission Date: 20211014
  Serious: Yes (Life-Threatening, Hospitalization, Disabling, Other)
  Sender: FDA-Public Use
  Company Number: PL-MYLANLABS-2018M1033278

PATIENT
  Age: 62 Year
  Sex: Male
  Weight: 137 kg

DRUGS (11)
  1. ZOLPIDEM [Suspect]
     Active Substance: ZOLPIDEM TARTRATE
     Indication: INSOMNIA
     Dosage: UNK
     Route: 048
  2. ZOLPIDEM [Interacting]
     Active Substance: ZOLPIDEM TARTRATE
     Indication: DEPRESSION
  3. SERTRALINE [Interacting]
     Active Substance: SERTRALINE HYDROCHLORIDE
     Indication: DEPRESSION
  4. TANAKAN [Interacting]
     Active Substance: GINKGO
     Indication: CEREBROVASCULAR ACCIDENT
     Dosage: UNK
  5. WARFARIN [Interacting]
     Active Substance: WARFARIN
     Indication: ISCHAEMIC STROKE
  6. SERTRALINE [Interacting]
     Active Substance: SERTRALINE HYDROCHLORIDE
     Indication: INSOMNIA
     Dosage: UNK
     Route: 048
  7. STILNOX [Suspect]
     Active Substance: ZOLPIDEM TARTRATE
     Indication: INSOMNIA
     Dosage: UNK
     Route: 048
  8. SERTRALINE [Interacting]
     Active Substance: SERTRALINE HYDROCHLORIDE
     Indication: POST STROKE DEPRESSION
  9. SOTALOL. [Concomitant]
     Active Substance: SOTALOL
     Indication: CEREBROVASCULAR ACCIDENT
     Dosage: UNK
  10. WARFARIN [Interacting]
     Active Substance: WARFARIN
     Indication: CEREBROVASCULAR ACCIDENT
     Dosage: UNK
     Route: 048
  11. SOTALOL. [Concomitant]
     Active Substance: SOTALOL
     Indication: ISCHAEMIC STROKE

REACTIONS (5)
  - Ischaemic stroke [Unknown]
  - Potentiating drug interaction [Unknown]
  - Apallic syndrome [Unknown]
  - Ischaemic cerebral infarction [Not Recovered/Not Resolved]
  - Drug interaction [Unknown]
